FAERS Safety Report 9637775 (Version 1)
Quarter: 2013Q4

REPORT INFORMATION
  Report Type: Spontaneous
  Country: US (occurrence: US)
  Receive Date: 20131022
  Receipt Date: 20131022
  Transmission Date: 20140711
  Serious: No
  Sender: FDA-Public Use
  Company Number: US-009507513-1310USA008928

PATIENT
  Sex: Male

DRUGS (1)
  1. INVANZ [Suspect]
     Dosage: AV, UNK
     Dates: start: 2013, end: 20131014

REACTIONS (3)
  - Rash [Unknown]
  - Urticaria [Unknown]
  - Hypersensitivity [Unknown]
